FAERS Safety Report 9618711 (Version 1)
Quarter: 2013Q4

REPORT INFORMATION
  Report Type: Spontaneous
  Country: US (occurrence: US)
  Receive Date: 20131014
  Receipt Date: 20131014
  Transmission Date: 20140711
  Serious: Yes (Other)
  Sender: FDA-Public Use
  Company Number: US-SA-2013SA099509

PATIENT
  Age: 65 Year
  Sex: Female

DRUGS (2)
  1. LANTUS SOLOSTAR [Suspect]
     Indication: DIABETES MELLITUS
     Dosage: DOSE:30 UNIT(S)
     Route: 058
     Dates: start: 2007
  2. SOLOSTAR [Concomitant]

REACTIONS (2)
  - Renal disorder [Recovered/Resolved]
  - Depressed mood [Recovered/Resolved]
